FAERS Safety Report 24533629 (Version 1)
Quarter: 2024Q4

REPORT INFORMATION
  Report Type: Spontaneous
  Country: FR (occurrence: FR)
  Receive Date: 20241022
  Receipt Date: 20241022
  Transmission Date: 20250114
  Serious: Yes (Other)
  Sender: EXELIXIS
  Company Number: FR-IPSEN Group, Research and Development-2024-20684

PATIENT
  Age: 82 Year
  Sex: Female
  Weight: 56 kg

DRUGS (6)
  1. CABOMETYX [Suspect]
     Active Substance: CABOZANTINIB S-MALATE
     Indication: Renal cancer
     Dosage: 40 MG, QD
     Route: 048
     Dates: start: 20240331, end: 20240417
  2. CABOMETYX [Suspect]
     Active Substance: CABOZANTINIB S-MALATE
     Dosage: 20 MG, QD
     Route: 048
     Dates: start: 20240426
  3. OPDIVO [Suspect]
     Active Substance: NIVOLUMAB
     Indication: Renal cancer
     Dosage: 480 MG
     Route: 042
     Dates: start: 20240329, end: 20240417
  4. OPDIVO [Suspect]
     Active Substance: NIVOLUMAB
     Dosage: 480 MG
     Route: 042
     Dates: start: 20240507
  5. KARDEGIC [Concomitant]
     Active Substance: ASPIRIN DL-LYSINE
     Indication: Cardiovascular event prophylaxis
     Route: 048
  6. ATENOLOL [Concomitant]
     Active Substance: ATENOLOL
     Indication: Product used for unknown indication
     Dosage: IN THE MORNING
     Route: 048

REACTIONS (8)
  - Hepatic cytolysis [Recovering/Resolving]
  - Musculoskeletal chest pain [Recovered/Resolved]
  - Myalgia [Not Recovered/Not Resolved]
  - Hyperhidrosis [Recovered/Resolved]
  - Abdominal pain [Not Recovered/Not Resolved]
  - Decreased appetite [Not Recovered/Not Resolved]
  - Fatigue [Not Recovered/Not Resolved]
  - Vomiting [Not Recovered/Not Resolved]

NARRATIVE: CASE EVENT DATE: 20240409
